FAERS Safety Report 4632549-0 (Version None)
Quarter: 2005Q2

REPORT INFORMATION
  Report Type: 
  Country: None (occurrence: None)
  Receive Date: 20050411
  Receipt Date: 20050223
  Transmission Date: 20051028
  Serious: Yes (Life-Threatening, Hospitalization, Disabling)
  Sender: FDA-Public Use
  Company Number: US-MERCK-0502USA03573

PATIENT
  Age: 57 Year
  Sex: Male
  Weight: 83 kg

DRUGS (8)
  1. VIOXX [Suspect]
     Indication: OSTEOARTHRITIS
     Route: 048
     Dates: start: 20021101, end: 20041101
  2. VIOXX [Suspect]
     Route: 048
     Dates: start: 20020729
  3. VIOXX [Suspect]
     Indication: PAIN
     Route: 048
     Dates: start: 20021101, end: 20041101
  4. VIOXX [Suspect]
     Route: 048
     Dates: start: 20020729
  5. ASPIRIN [Concomitant]
     Route: 065
  6. LEVOXYL [Concomitant]
     Route: 065
  7. DIOVAN [Concomitant]
     Route: 065
  8. FLEXERIL [Concomitant]
     Indication: PAIN IN EXTREMITY
     Route: 048

REACTIONS (8)
  - ARTHRALGIA [None]
  - BACK DISORDER [None]
  - BURSITIS [None]
  - DYSPEPSIA [None]
  - HEADACHE [None]
  - HYPERTENSION [None]
  - NAIL INFECTION [None]
  - PAIN IN EXTREMITY [None]
